FAERS Safety Report 9802840 (Version 1)
Quarter: 2014Q1

REPORT INFORMATION
  Report Type: Spontaneous
  Country: KR (occurrence: None)
  Receive Date: 20140102
  Receipt Date: 20140102
  Transmission Date: 20141002
  Serious: Yes (Other)
  Sender: FDA-Public Use
  Company Number: VAL_02879_2013

PATIENT
  Sex: 0

DRUGS (1)
  1. CALCITRIOL [Suspect]
     Indication: HYPOPARATHYROIDISM
     Dosage: 0.031 +/-  0.025 MCG/KG/DAY

REACTIONS (2)
  - Nephrocalcinosis [None]
  - Renal failure chronic [None]
